FAERS Safety Report 8976367 (Version 1)
Quarter: 2012Q4

REPORT INFORMATION
  Report Type: 
  Country: IT (occurrence: IT)
  Receive Date: 20121220
  Receipt Date: 20121220
  Transmission Date: 20130627
  Serious: Yes (Other)
  Sender: FDA-Public Use
  Company Number: IT-ROXANE LABORATORIES, INC.-2012-BI-01544GD

PATIENT
  Sex: Female

DRUGS (1)
  1. PREDNISONE [Suspect]
     Indication: TEMPORAL ARTERITIS
     Dosage: 60 mg

REACTIONS (11)
  - Dementia [Recovered/Resolved]
  - Memory impairment [Unknown]
  - Insomnia [Unknown]
  - Memory impairment [Unknown]
  - Anxiety [Recovered/Resolved]
  - Mood swings [Recovered/Resolved]
  - Apathy [Recovered/Resolved]
  - Disorientation [Unknown]
  - Amnestic disorder [Unknown]
  - Impaired self-care [Recovered/Resolved]
  - Cerebral atrophy [Unknown]
